FAERS Safety Report 9126425 (Version 1)
Quarter: 2013Q1

REPORT INFORMATION
  Report Type: Spontaneous
  Country: DE (occurrence: DE)
  Receive Date: 20130117
  Receipt Date: 20130117
  Transmission Date: 20140127
  Serious: Yes (Other)
  Sender: FDA-Public Use
  Company Number: DE-GLAXOSMITHKLINE-B0860167A

PATIENT
  Sex: Male

DRUGS (1)
  1. NEOTIGASON [Suspect]
     Indication: ICHTHYOSIS
     Route: 048
     Dates: end: 201212

REACTIONS (1)
  - Azoospermia [Unknown]
